FAERS Safety Report 18094318 (Version 1)
Quarter: 2020Q3

REPORT INFORMATION
  Report Type: Other
  Country: RU (occurrence: RU)
  Receive Date: 20200730
  Receipt Date: 20200730
  Transmission Date: 20201103
  Serious: Yes (Hospitalization, Other)
  Sender: FDA-Public Use
  Company Number: RU-TOPROL ACQUISITION LLC-2020-TOP-000305

PATIENT
  Age: 70 Year
  Sex: Female
  Weight: 79 kg

DRUGS (7)
  1. EUTHYROX [Concomitant]
     Active Substance: LEVOTHYROXINE SODIUM
     Indication: HYPOTHYROIDISM
     Dosage: 75 MG, QD
     Route: 050
     Dates: start: 2008, end: 20200517
  2. ACTOVEGIN 10%?NACL [Concomitant]
     Active Substance: BLOOD, BOVINE
     Indication: CEREBRAL ISCHAEMIA
     Dosage: 80 MG, QD
     Route: 030
     Dates: start: 20200506, end: 20200512
  3. LORISTA [Concomitant]
     Active Substance: LOSARTAN POTASSIUM
     Indication: HYPERTENSION
     Dosage: 50 MG, QD
     Route: 048
     Dates: start: 2010, end: 20200517
  4. GRANDAXIN [Concomitant]
     Active Substance: TOFISOPAM
     Indication: ANXIETY
     Dosage: 25 MG, QD
     Route: 048
     Dates: start: 20200517, end: 20200530
  5. APROVEL [Concomitant]
     Active Substance: IRBESARTAN
     Indication: HYPERTENSION
     Dosage: 150 MG, QD
     Route: 048
     Dates: start: 20200506, end: 20200510
  6. SYMPATHYL                          /00818101/ [Concomitant]
     Active Substance: HAWTHORN LEAF WITH FLOWER\METHENAMINE\PEPTONE, DRIED\PEUMUS BOLDUS\PHENOBARBITAL
     Indication: ANXIETY
     Dosage: 1 DF, QD
     Route: 048
     Dates: start: 20200508, end: 20200510
  7. METOPROLOL SUCCINATE. [Suspect]
     Active Substance: METOPROLOL SUCCINATE
     Indication: HYPERTENSION
     Dosage: 12.5 MG, QD
     Route: 048
     Dates: start: 20200517, end: 20200517

REACTIONS (5)
  - Palpitations [Recovered/Resolved]
  - Lip oedema [Recovered/Resolved]
  - Blood pressure increased [Recovered/Resolved]
  - Throat irritation [Recovered/Resolved]
  - Erythema [Recovered/Resolved]

NARRATIVE: CASE EVENT DATE: 20200517
